FAERS Safety Report 12110227 (Version 2)
Quarter: 2016Q1

REPORT INFORMATION
  Report Type: Report from Study
  Country: US (occurrence: US)
  Receive Date: 20160224
  Receipt Date: 20160225
  Transmission Date: 20160526
  Serious: No
  Sender: FDA-Public Use
  Company Number: PHEH2016US004232

PATIENT
  Age: 33 Year
  Sex: Female
  Weight: 80.73 kg

DRUGS (1)
  1. GILENYA [Suspect]
     Active Substance: FINGOLIMOD HYDROCHLORIDE
     Indication: RELAPSING-REMITTING MULTIPLE SCLEROSIS
     Dosage: 0.5 MG, QD
     Route: 048
     Dates: start: 20160218

REACTIONS (5)
  - Vomiting [Recovering/Resolving]
  - Skin discolouration [Recovered/Resolved]
  - Feeling abnormal [Unknown]
  - Heart rate decreased [Recovered/Resolved]
  - Drug monitoring procedure incorrectly performed [Unknown]

NARRATIVE: CASE EVENT DATE: 20160218
